FAERS Safety Report 5781629-5 (Version None)
Quarter: 2008Q2

REPORT INFORMATION
  Report Type: 
  Country: None (occurrence: None)
  Receive Date: 20080623
  Receipt Date: 20070525
  Transmission Date: 20081010
  Serious: No
  Sender: FDA-Public Use
  Company Number: US-ASTRAZENECA-2007UW13061

PATIENT
  Age: 68 Year
  Sex: Female
  Weight: 63.5 kg

DRUGS (4)
  1. RHINOCORT [Suspect]
     Indication: HYPERSENSITIVITY
     Route: 045
     Dates: start: 20040101
  2. ASPIRIN [Concomitant]
  3. MAGNESIUM [Concomitant]
  4. ASCORBIC ACID [Concomitant]

REACTIONS (1)
  - HAEMOPTYSIS [None]
